FAERS Safety Report 9113541 (Version 1)
Quarter: 2013Q1

REPORT INFORMATION
  Report Type: Spontaneous
  Country: US (occurrence: US)
  Receive Date: 20130131
  Receipt Date: 20130131
  Transmission Date: 20140127
  Serious: No
  Sender: FDA-Public Use
  Company Number: US-PFIZER INC-2013038580

PATIENT
  Sex: Female

DRUGS (2)
  1. LYRICA [Suspect]
     Indication: SURGERY
     Dosage: 150 MG, DAILY
  2. LYRICA [Suspect]
     Indication: FIBROMYALGIA

REACTIONS (3)
  - Hypersomnia [Unknown]
  - Pain [Unknown]
  - Intentional drug misuse [Unknown]
